FAERS Safety Report 18246132 (Version 1)
Quarter: 2020Q3

REPORT INFORMATION
  Report Type: Spontaneous
  Country: US (occurrence: US)
  Receive Date: 20200909
  Receipt Date: 20200909
  Transmission Date: 20201103
  Serious: Yes (Death, Other)
  Sender: FDA-Public Use
  Company Number: US-SUN PHARMACEUTICAL INDUSTRIES LTD-2020R1-259610

PATIENT
  Age: 18 Year
  Sex: Male

DRUGS (3)
  1. NADOLOL. [Concomitant]
     Active Substance: NADOLOL
     Indication: ATRIAL FLUTTER
     Dosage: UNK
     Route: 065
  2. FLECAINIDE ACETATE. [Suspect]
     Active Substance: FLECAINIDE ACETATE
     Dosage: 500 MILLIGRAM (25 ML )
     Route: 065
  3. FLECAINIDE ACETATE. [Suspect]
     Active Substance: FLECAINIDE ACETATE
     Indication: ATRIAL FLUTTER
     Dosage: 25 MILLIGRAM, BID
     Route: 065

REACTIONS (8)
  - Electrocardiogram QRS complex prolonged [Recovering/Resolving]
  - Mental status changes [Unknown]
  - Bradycardia [Fatal]
  - Accidental overdose [Fatal]
  - Tachyarrhythmia [Fatal]
  - Hypotension [Recovering/Resolving]
  - Electrocardiogram PR prolongation [Recovering/Resolving]
  - Cardiac arrest [Fatal]
